FAERS Safety Report 5310408-8 (Version None)
Quarter: 2007Q2

REPORT INFORMATION
  Report Type: 
  Country: None (occurrence: None)
  Receive Date: 20070427
  Receipt Date: 20070418
  Transmission Date: 20071010
  Serious: Yes (Hospitalization, Other)
  Sender: FDA-Public Use
  Company Number: US-JNJFOC-20070303876

PATIENT
  Sex: Female
  Weight: 58.7 kg

DRUGS (10)
  1. REMICADE [Suspect]
     Route: 042
  2. REMICADE [Suspect]
     Route: 042
  3. REMICADE [Suspect]
     Route: 042
  4. REMICADE [Suspect]
     Indication: CROHN'S DISEASE
     Route: 042
  5. ESTRADIOL [Concomitant]
     Route: 061
  6. ATENOLOL [Concomitant]
     Indication: HYPERTENSION
     Route: 048
  7. CANASA [Concomitant]
     Indication: CROHN'S DISEASE
     Dosage: QHS
     Route: 054
  8. MERCAPTOPURINE [Concomitant]
     Indication: CROHN'S DISEASE
     Route: 048
  9. COUMADIN [Concomitant]
     Route: 048
  10. TRIAMTERENE AND HYDROCHLOROTHIAZIDE [Concomitant]
     Dosage: 37.5/25 MG QD
     Route: 048

REACTIONS (2)
  - FEBRILE NEUTROPENIA [None]
  - HISTOPLASMOSIS [None]
